FAERS Safety Report 12062436 (Version 1)
Quarter: 2016Q1

REPORT INFORMATION
  Report Type: Spontaneous
  Country: FR (occurrence: FR)
  Receive Date: 20160210
  Receipt Date: 20160210
  Transmission Date: 20160526
  Serious: Yes (Hospitalization)
  Sender: FDA-Public Use
  Company Number: FR-ASTRAZENECA-2016SE12720

PATIENT
  Age: 29878 Day
  Sex: Female

DRUGS (10)
  1. AMLOR [Concomitant]
     Active Substance: AMLODIPINE BESYLATE
  2. ANGIOX [Suspect]
     Active Substance: BIVALIRUDIN
     Route: 042
     Dates: start: 20151221, end: 20151221
  3. KARDEGIC [Suspect]
     Active Substance: ASPIRIN LYSINE
     Route: 042
     Dates: start: 20151221, end: 20151221
  4. VISIPAQUE [Suspect]
     Active Substance: IODIXANOL
     Route: 013
     Dates: start: 20151221, end: 20151221
  5. IMOVANE [Concomitant]
     Active Substance: ZOPICLONE
  6. BRILIQUE [Suspect]
     Active Substance: TICAGRELOR
     Route: 048
     Dates: start: 20151221, end: 20151221
  7. HEPARIN SODIUM. [Suspect]
     Active Substance: HEPARIN SODIUM
     Dosage: 2500 IU/ML
     Route: 040
     Dates: start: 20151221, end: 20151221
  8. BIPRETERAX [Concomitant]
     Active Substance: INDAPAMIDE\PERINDOPRIL
  9. DETENSIEL [Concomitant]
     Active Substance: BISOPROLOL FUMARATE
  10. NEURONTIN [Concomitant]
     Active Substance: GABAPENTIN

REACTIONS (4)
  - Large intestine polyp [Unknown]
  - Rectal haemorrhage [Recovered/Resolved]
  - Purpura [Recovered/Resolved]
  - Haemorrhagic anaemia [Recovering/Resolving]

NARRATIVE: CASE EVENT DATE: 20151221
